FAERS Safety Report 11656155 (Version 4)
Quarter: 2016Q1

REPORT INFORMATION
  Report Type: Spontaneous
  Country: JP (occurrence: JP)
  Receive Date: 20151023
  Receipt Date: 20160127
  Transmission Date: 20160525
  Serious: Yes (Hospitalization)
  Sender: FDA-Public Use
  Company Number: JP-009507513-1510JPN000349

PATIENT
  Age: 80 Year
  Sex: Female
  Weight: 49 kg

DRUGS (16)
  1. BONOTEO [Concomitant]
     Active Substance: MINODRONIC ACID
     Dosage: 50 MG, QM (FREQUENCY REPORTED AS EVERY 4 WEEKS AND FORMULATION REPORTED AS POR)
     Route: 048
  2. EDIROL [Concomitant]
     Active Substance: ELDECALCITOL
     Dosage: DAILY DOSAGE UNKNOWN (FORMULATION REPORTED AS POR)
     Route: 048
  3. LAC-B [Concomitant]
     Active Substance: BIFIDOBACTERIUM SPP.
     Dosage: 3 G, TID (FORMULATION REPORTED AS POR)
     Route: 048
  4. CATALIN [Concomitant]
     Active Substance: PIRENOXINE
     Dosage: DAILY DOSAGE UNKNOWN (FORMULATION REPORTED AS EED)
     Route: 047
  5. MYSLEE [Concomitant]
     Active Substance: ZOLPIDEM TARTRATE
     Dosage: 0.25 MG, DIVIDED DOSE FREQUENCY UNKNOWN (FORMULATION REPORTED AS POR)
     Route: 048
  6. SOVALDI [Suspect]
     Active Substance: SOFOSBUVIR
     Dosage: DAILY DOSAGE UNKNOWN
     Route: 048
     Dates: start: 20150910, end: 20150920
  7. VESICARE [Concomitant]
     Active Substance: SOLIFENACIN SUCCINATE
     Dosage: 5 MG, QD, AS OCCASION ARISES (FORMULATION REPORTED AS POR)
     Route: 048
  8. SOVALDI [Suspect]
     Active Substance: SOFOSBUVIR
     Dosage: DAILY DOSAGE UNKNOWN
     Route: 048
     Dates: start: 20150924, end: 20151202
  9. REBETOL [Suspect]
     Active Substance: RIBAVIRIN
     Dosage: 600 MG, DIVIDED DOSE FREQUENCY UNKNOWN
     Route: 048
     Dates: start: 20150910, end: 20150919
  10. REBETOL [Suspect]
     Active Substance: RIBAVIRIN
     Dosage: 200 MG, DIVIDED DOSE FREQUENCY UNKNOWN
     Route: 048
     Dates: start: 20150924, end: 20150927
  11. REBETOL [Suspect]
     Active Substance: RIBAVIRIN
     Dosage: 400 MG, DIVIDED DOSE FREQUENCY UNKNOWN
     Route: 048
     Dates: start: 20150928, end: 20151103
  12. AZOPT [Concomitant]
     Active Substance: BRINZOLAMIDE
     Dosage: DAILY DOSAGE UNKNOWN (FORMULATION REPORTED AS EED)
     Route: 047
  13. REBETOL [Suspect]
     Active Substance: RIBAVIRIN
     Dosage: 200 MG, DIVIDED DOSE FREQUENCY UNKNOWN
     Route: 048
     Dates: start: 20151104, end: 20151202
  14. BAKUMONDO-TO [Concomitant]
     Active Substance: HERBALS
     Dosage: AT THE ONSET OF COUGH, DAILY DOSAGE UNKNOWN (FORMULATION REPORTED AS POR)
     Route: 048
  15. MIKELAN [Concomitant]
     Dosage: DAILY DOSAGE UNKNOWN (FORMULATION REPORTED AS EED)
     Route: 047
  16. XALATAN [Concomitant]
     Active Substance: LATANOPROST
     Dosage: DAILY DOSAGE UNKNOWN (FORMULATION REPORTED AS EED)
     Route: 047

REACTIONS (2)
  - Anaemia [Recovered/Resolved]
  - Blood bilirubin increased [Recovered/Resolved]

NARRATIVE: CASE EVENT DATE: 20150917
